FAERS Safety Report 11469343 (Version 1)
Quarter: 2015Q3

REPORT INFORMATION
  Report Type: Spontaneous
  Country: US (occurrence: US)
  Receive Date: 20150908
  Receipt Date: 20150908
  Transmission Date: 20151125
  Serious: No
  Sender: FDA-Public Use
  Company Number: US-GLAXOSMITHKLINE-A0784329A

PATIENT
  Age: 61 Year
  Sex: Female

DRUGS (4)
  1. ATENOLOL. [Concomitant]
     Active Substance: ATENOLOL
  2. MEVACOR [Concomitant]
     Active Substance: LOVASTATIN
  3. KEPPRA [Concomitant]
     Active Substance: LEVETIRACETAM
  4. TYKERB [Suspect]
     Active Substance: LAPATINIB DITOSYLATE
     Indication: BREAST CANCER
     Dosage: 5 DF, QD
     Route: 048
     Dates: start: 20080401

REACTIONS (6)
  - Peripheral swelling [Unknown]
  - Swelling [Recovering/Resolving]
  - Drug dose omission [Unknown]
  - Paraesthesia [Unknown]
  - Muscle tightness [Unknown]
  - Muscle spasms [Unknown]

NARRATIVE: CASE EVENT DATE: 200904
